FAERS Safety Report 11507449 (Version 1)
Quarter: 2015Q3

REPORT INFORMATION
  Report Type: Spontaneous
  Country: US (occurrence: None)
  Receive Date: 20150914
  Receipt Date: 20150914
  Transmission Date: 20151125
  Serious: Yes (Other)
  Sender: FDA-Public Use
  Company Number: None

PATIENT
  Age: 73 Year
  Sex: Male
  Weight: 75.3 kg

DRUGS (2)
  1. OBINUTUZUMAB 1000 MG GENENTECH [Suspect]
     Active Substance: OBINUTUZUMAB
     Indication: CHRONIC LYMPHOCYTIC LEUKAEMIA
     Dosage: 1000 MG IN 250 ML, TITRATABLE DRIP
     Dates: start: 20150901, end: 20150901
  2. OBINUTUZUMAB 1000 MG GENENTECH [Suspect]
     Active Substance: OBINUTUZUMAB
     Indication: LYMPHOCYTIC LYMPHOMA
     Dosage: 1000 MG IN 250 ML, TITRATABLE DRIP
     Dates: start: 20150901, end: 20150901

REACTIONS (1)
  - Incorrect dose administered [None]

NARRATIVE: CASE EVENT DATE: 20150901
